FAERS Safety Report 25622047 (Version 3)
Quarter: 2025Q3

REPORT INFORMATION
  Report Type: Spontaneous
  Country: US (occurrence: US)
  Receive Date: 20250730
  Receipt Date: 20250904
  Transmission Date: 20251021
  Serious: Yes (Other)
  Sender: AUTOLUS THERAPEUTICS
  Company Number: US-Autolus Ltd-2181503

PATIENT
  Sex: Female

DRUGS (3)
  1. AUCATZYL [Suspect]
     Active Substance: OBECABTAGENE AUTOLEUCEL
     Indication: Acute lymphocytic leukaemia
     Dates: start: 20250512, end: 20250512
  2. GABAPENTIN [Concomitant]
     Active Substance: GABAPENTIN
  3. FLUDARABINE [Concomitant]
     Active Substance: FLUDARABINE PHOSPHATE
     Dates: start: 20250409, end: 20250411

REACTIONS (1)
  - Neuropathy peripheral [Recovering/Resolving]
